FAERS Safety Report 20168485 (Version 1)
Quarter: 2021Q4

REPORT INFORMATION
  Report Type: Spontaneous
  Country: NL (occurrence: NL)
  Receive Date: 20211210
  Receipt Date: 20211210
  Transmission Date: 20220304
  Serious: Yes (Hospitalization)
  Sender: FDA-Public Use
  Company Number: None

PATIENT
  Age: 61 Year
  Sex: Female
  Weight: 72.3 kg

DRUGS (13)
  1. PREDNISOLONE [Suspect]
     Active Substance: PREDNISOLONE
     Indication: Polymyositis
     Dosage: 30 MILLIGRAM DAILY; PREDNISOLON TABLET  5MG / BRAND NAME NOT SPECIFIED
     Route: 065
     Dates: start: 2021, end: 20211106
  2. PREDNISOLONE [Suspect]
     Active Substance: PREDNISOLONE
     Dosage: 5 MILLIGRAM DAILY; 1DD1
     Route: 065
     Dates: start: 20210301, end: 2021
  3. AZATHIOPRINE [Suspect]
     Active Substance: AZATHIOPRINE
     Indication: Polymyositis
     Dosage: 100 MILLIGRAM DAILY; 2DD1, AZATHIOPRINE TABLET  50MG / BRAND NAME NOT SPECIFIED
     Route: 065
     Dates: start: 201802, end: 202103
  4. AZATHIOPRINE [Suspect]
     Active Substance: AZATHIOPRINE
     Dosage: 150 MILLIGRAM DAILY; 3DD1
     Route: 065
     Dates: start: 202103, end: 20211108
  5. VERAPAMIL [Concomitant]
     Active Substance: VERAPAMIL HYDROCHLORIDE
     Dosage: 240 MG, VERAPAMIL TABLET MGA 240MG / BRAND NAME NOT SPECIFIED, THERAPY START AND END DATE: ASKU
  6. CALCIUM CARB/COLECALC/ CALCI CHEW D3 [Concomitant]
     Dosage: 500/400 1DD2, THERAPY START AND END DATE: ASKU, 2 DF, CALCIUM CARB/COLECALC CHEW TB 1.25G/400IE (500
  7. HYDROCHLOROTHIAZIDE [Concomitant]
     Active Substance: HYDROCHLOROTHIAZIDE
     Dosage: 12,5 MG, THERAPY START AND END DATE: ASKU, HYDROCHLOROTHIAZIDE TABLET 12.5MG / BRAND NAME NOT SPECIF
  8. ACENOCOUMAROL [Concomitant]
     Active Substance: ACENOCOUMAROL
     Dosage: ACCORDING TO PRESCRIPTION, 1 DF, ACENOCOUMAROL TABLET 1MG / BRAND NAME NOT SPECIFIED, THERAPY START
  9. PANTOPRAZOLE SODIUM [Concomitant]
     Active Substance: PANTOPRAZOLE SODIUM
     Dosage: 40 MG, THERAPY START AND END DATE: ASKU, PANTOPRAZOL TABLET MSR 40MG / BRAND NAME NOT SPECIFIED
  10. PERINDOPRIL [Concomitant]
     Active Substance: PERINDOPRIL
     Dosage: 8 MG, PERINDOPRIL TABLET 8MG (ERBUMINE) / BRAND NAME NOT SPECIFIED, THERAPY START AND END DATE: ASKU
  11. EZETIMIBE [Concomitant]
     Active Substance: EZETIMIBE
     Dosage: 10 MG, THERAPY START AND END DATE: ASKU, EZETIMIB TABLET 10MG / BRAND NAME NOT SPECIFIED
  12. CIPROFLOXACIN [Concomitant]
     Active Substance: CIPROFLOXACIN
     Dosage: 500 MG, CIPROFLOXACINE TABLET 500MG / BRAND NAME NOT SPECIFIED, THERAPY START AND END DATE: ASKU
  13. EUTHYROX [Concomitant]
     Active Substance: LEVOTHYROXINE SODIUM
     Dosage: 25 MCG, THERAPY START AND END DATE: ASKU, LEVOTHYROXINE TABLET 25UG (SODIUM) / EUTHYROX TABLET 25MCG

REACTIONS (1)
  - Cytomegalovirus infection [Recovering/Resolving]

NARRATIVE: CASE EVENT DATE: 20211106
